FAERS Safety Report 6011741-7 (Version None)
Quarter: 2008Q4

REPORT INFORMATION
  Report Type: 
  Country: None (occurrence: None)
  Receive Date: 20081218
  Receipt Date: 20080226
  Transmission Date: 20090506
  Serious: Yes (Other)
  Sender: FDA-Public Use
  Company Number: JP-ROCHE-546043

PATIENT
  Sex: Female

DRUGS (3)
  1. TAMIFLU [Suspect]
     Route: 048
     Dates: start: 20080201, end: 20080202
  2. TAMIFLU [Suspect]
     Dosage: DOSAGE REDUCED
     Route: 048
     Dates: start: 20080203, end: 20080203
  3. CALONAL [Concomitant]
     Dosage: TAKEN AS NEEDED
     Route: 048
     Dates: start: 20080121

REACTIONS (2)
  - HALLUCINATION [None]
  - HALLUCINATION, AUDITORY [None]
